FAERS Safety Report 8766523 (Version 2)
Quarter: 2013Q1

REPORT INFORMATION
  Report Type: Spontaneous
  Country: US (occurrence: US)
  Receive Date: 20120905
  Receipt Date: 20130201
  Transmission Date: 20140127
  Serious: Yes (Other)
  Sender: FDA-Public Use
  Company Number: US-ASTRAZENECA-2012SE46614

PATIENT
  Age: 19 Year
  Sex: Male

DRUGS (1)
  1. NEXIUM [Suspect]
     Route: 048

REACTIONS (6)
  - Hiatus hernia [Unknown]
  - Oesophageal rupture [Unknown]
  - Malaise [Unknown]
  - Asperger^s disorder [Unknown]
  - Autism [Unknown]
  - Communication disorder [Unknown]
